FAERS Safety Report 18212570 (Version 9)
Quarter: 2021Q3

REPORT INFORMATION
  Report Type: Report from Study
  Country: FR (occurrence: FR)
  Receive Date: 20200831
  Receipt Date: 20210803
  Transmission Date: 20211014
  Serious: Yes (Hospitalization, Disabling)
  Sender: FDA-Public Use
  Company Number: NVSC2020FR235723

PATIENT
  Age: 39 Year
  Sex: Female
  Weight: 104 kg

DRUGS (4)
  1. DIASEPTYL [Concomitant]
     Active Substance: CHLORHEXIDINE
     Indication: HIDRADENITIS
     Dosage: 1 APPICAT ON QD, TROPICAL
     Route: 065
     Dates: start: 20190930
  2. SECUKINUMAB. [Suspect]
     Active Substance: SECUKINUMAB
     Indication: HIDRADENITIS
     Dosage: 2 ML
     Route: 058
     Dates: start: 20191015, end: 20200818
  3. DIFFU K [Concomitant]
     Active Substance: POTASSIUM CHLORIDE
     Indication: HYPOKALAEMIA
     Dosage: 600 MG, BID
     Route: 048
     Dates: start: 20200827
  4. DAFALGAN [Concomitant]
     Active Substance: ACETAMINOPHEN
     Indication: LYMPHOEDEMA
     Dosage: 1 G, PRN
     Route: 048
     Dates: start: 20191030

REACTIONS (1)
  - Large intestine infection [Recovering/Resolving]

NARRATIVE: CASE EVENT DATE: 20200818
